FAERS Safety Report 15505110 (Version 1)
Quarter: 2018Q4

REPORT INFORMATION
  Report Type: Spontaneous
  Country: US (occurrence: US)
  Receive Date: 20181010
  Receipt Date: 20181010
  Transmission Date: 20190205
  Serious: Yes (Hospitalization)
  Sender: FDA-Public Use
  Company Number: None

PATIENT
  Age: 72 Year
  Sex: Male

DRUGS (12)
  1. REGORAFENIB. [Suspect]
     Active Substance: REGORAFENIB
     Indication: COLON CANCER
     Route: 048
  2. AMOXICILLIN 500MG [Concomitant]
     Active Substance: AMOXICILLIN
  3. LOMOTIL 2.5-.025MG [Concomitant]
  4. GABAPENTIN 300MG [Concomitant]
     Active Substance: GABAPENTIN
  5. MS CONTIN 100MG [Concomitant]
  6. ONDANSETRON 8MG [Concomitant]
     Active Substance: ONDANSETRON
  7. TAMSULOSIN 0.4MG [Concomitant]
     Active Substance: TAMSULOSIN
  8. BETAMETHASONE 0.1% OINTMENT [Concomitant]
  9. NORCO 7.5-325MG [Concomitant]
  10. AMLODIPINE [Concomitant]
     Active Substance: AMLODIPINE BESYLATE
  11. PROMETHAZINE 12.5 [Concomitant]
  12. CLINDAMYCIN GEL 1% [Concomitant]

REACTIONS (2)
  - Skin ulcer [None]
  - Skin exfoliation [None]

NARRATIVE: CASE EVENT DATE: 20180907
